FAERS Safety Report 18536026 (Version 6)
Quarter: 2021Q2

REPORT INFORMATION
  Report Type: Report from Study
  Country: None (occurrence: US)
  Receive Date: 20201124
  Receipt Date: 20210413
  Transmission Date: 20210717
  Serious: Yes (Hospitalization, Other)
  Sender: FDA-Public Use
  Company Number: US-ABBVIE-20K-163-3567583-00

PATIENT
  Age: 52 Year
  Sex: Female
  Weight: 63.56 kg

DRUGS (10)
  1. HUMIRA [Suspect]
     Active Substance: ADALIMUMAB
     Indication: CROHN^S DISEASE
     Dosage: DAY 1
     Route: 058
     Dates: start: 20201013, end: 20201013
  2. HUMIRA [Suspect]
     Active Substance: ADALIMUMAB
  3. CHOLESTYRAMINE. [Suspect]
     Active Substance: CHOLESTYRAMINE
     Indication: PRODUCT USED FOR UNKNOWN INDICATION
     Route: 048
  4. PENTASA [Concomitant]
     Active Substance: MESALAMINE
     Indication: PRODUCT USED FOR UNKNOWN INDICATION
  5. HUMIRA [Suspect]
     Active Substance: ADALIMUMAB
     Indication: CROHN^S DISEASE
     Dosage: DAY 29/ CITRATE FREE
     Route: 058
     Dates: start: 20201110, end: 20210316
  6. HUMIRA [Suspect]
     Active Substance: ADALIMUMAB
     Indication: CROHN^S DISEASE
     Route: 058
     Dates: start: 201412, end: 201711
  7. HUMIRA [Suspect]
     Active Substance: ADALIMUMAB
     Dosage: DAY 15
     Route: 058
     Dates: start: 20201026, end: 20201026
  8. HUMIRA [Suspect]
     Active Substance: ADALIMUMAB
     Route: 058
     Dates: start: 2020, end: 2020
  9. PREDNISONE. [Concomitant]
     Active Substance: PREDNISONE
     Indication: PRODUCT USED FOR UNKNOWN INDICATION
     Dates: end: 20201107
  10. COVID?19 VACCINE NOS. [Suspect]
     Active Substance: COVID-19 VACCINE NOS
     Indication: COVID-19 IMMUNISATION
     Dosage: PFIZER
     Route: 030
     Dates: start: 20210324, end: 20210324

REACTIONS (39)
  - Anal fissure haemorrhage [Unknown]
  - Fatigue [Recovered/Resolved]
  - Road traffic accident [Recovered/Resolved]
  - Nausea [Recovered/Resolved]
  - Injection site pain [Unknown]
  - Injection site erythema [Not Recovered/Not Resolved]
  - Diarrhoea [Recovered/Resolved]
  - Post procedural complication [Unknown]
  - Lymphangiectasia [Unknown]
  - Abdominal pain upper [Not Recovered/Not Resolved]
  - Peripheral swelling [Recovered/Resolved]
  - Mucosal discolouration [Unknown]
  - Adhesion [Unknown]
  - Ulcer [Unknown]
  - Rectal haemorrhage [Not Recovered/Not Resolved]
  - Fatigue [Recovered/Resolved]
  - Small intestinal stenosis [Unknown]
  - Decreased appetite [Not Recovered/Not Resolved]
  - Increased tendency to bruise [Unknown]
  - Dizziness [Recovered/Resolved]
  - Drug specific antibody [Not Recovered/Not Resolved]
  - Abdominal adhesions [Unknown]
  - Hypophagia [Recovered/Resolved]
  - Tissue discolouration [Unknown]
  - Rash [Unknown]
  - Nasal congestion [Not Recovered/Not Resolved]
  - Anxiety [Recovered/Resolved]
  - Abdominal distension [Unknown]
  - Insomnia [Not Recovered/Not Resolved]
  - Dry throat [Recovered/Resolved]
  - Vascular occlusion [Unknown]
  - Post procedural diarrhoea [Not Recovered/Not Resolved]
  - Weight decreased [Not Recovered/Not Resolved]
  - Food intolerance [Unknown]
  - Polyp [Unknown]
  - Injection site bruising [Not Recovered/Not Resolved]
  - Injection site pruritus [Not Recovered/Not Resolved]
  - Therapeutic product effect decreased [Unknown]
  - Headache [Recovered/Resolved]

NARRATIVE: CASE EVENT DATE: 2016
